FAERS Safety Report 9055078 (Version 1)
Quarter: 2013Q1

REPORT INFORMATION
  Report Type: Spontaneous
  Country: GB (occurrence: GB)
  Receive Date: 20130206
  Receipt Date: 20130206
  Transmission Date: 20140127
  Serious: Yes (Life-Threatening)
  Sender: FDA-Public Use
  Company Number: GB-JNJFOC-20130114075

PATIENT
  Age: 83 Year
  Sex: Male
  Weight: 65 kg

DRUGS (14)
  1. XARELTO [Suspect]
     Indication: HIP ARTHROPLASTY
     Dosage: CUMULATIVE DOSE : 130 MG
     Route: 048
     Dates: start: 20121229, end: 20130111
  2. XARELTO [Suspect]
     Indication: THROMBOSIS PROPHYLAXIS
     Dosage: CUMULATIVE DOSE : 130 MG
     Route: 048
     Dates: start: 20121229, end: 20130111
  3. CYCLIZINE [Concomitant]
     Indication: PRODUCT USED FOR UNKNOWN INDICATION
     Route: 065
  4. DICLOFENAC [Concomitant]
     Route: 065
  5. LACTULOSE [Concomitant]
     Route: 065
  6. PARACETAMOL [Concomitant]
     Route: 065
  7. ORAMORPH [Concomitant]
     Route: 065
  8. SODIUM LACTATE [Concomitant]
     Route: 065
  9. TRAMADOL [Concomitant]
     Route: 048
  10. GENTAMICIN [Concomitant]
     Route: 065
  11. GABAPENTIN [Concomitant]
     Route: 065
  12. FLUCLOXACILLIN [Concomitant]
     Route: 065
  13. ENOXAPARIN [Concomitant]
     Route: 065
  14. ZOPICLONE [Concomitant]
     Route: 065

REACTIONS (1)
  - Deep vein thrombosis [Recovering/Resolving]
